FAERS Safety Report 7492776-4 (Version None)
Quarter: 2011Q2

REPORT INFORMATION
  Report Type: 
  Country: None (occurrence: None)
  Receive Date: 20110519
  Receipt Date: 20110518
  Transmission Date: 20111010
  Serious: Yes (Hospitalization)
  Sender: FDA-Public Use
  Company Number: SK-BAYER-2011-042144

PATIENT
  Sex: Male

DRUGS (1)
  1. ULTRAVIST 150 [Suspect]
     Indication: PRODUCT USED FOR UNKNOWN INDICATION
     Dosage: 100 ML, ONCE
     Dates: start: 20110509, end: 20110509

REACTIONS (3)
  - RESPIRATORY TRACT OEDEMA [None]
  - GENERALISED OEDEMA [None]
  - RASH PUSTULAR [None]
